FAERS Safety Report 20485917 (Version 7)
Quarter: 2023Q4

REPORT INFORMATION
  Report Type: Report from Study
  Country: DE (occurrence: DE)
  Receive Date: 20220217
  Receipt Date: 20231011
  Transmission Date: 20240110
  Serious: Yes (Death, Hospitalization)
  Sender: FDA-Public Use
  Company Number: DE-NOVARTISPH-NVSC2019DE051154

PATIENT
  Sex: Female
  Weight: 54 kg

DRUGS (8)
  1. KISQALI [Suspect]
     Active Substance: RIBOCICLIB
     Indication: Breast cancer metastatic
     Dosage: 600 MG DAILY DOSE  (ADMINISTRATION SCHEME 21 DAYS INTAKE, 7 DAYS PAUSE)
     Route: 048
     Dates: start: 20191025, end: 20191121
  2. KISQALI [Suspect]
     Active Substance: RIBOCICLIB
     Dosage: 600 MG, DAILY DOSE (ADMINISTRATION SCHEME 21 DAYS INTAKE, 7 DAYS PAUSE)
     Route: 048
     Dates: start: 20191122, end: 20191219
  3. KISQALI [Suspect]
     Active Substance: RIBOCICLIB
     Dosage: 400 MG DAILY DOSE (ADMINISTRATION SCHEME 21 DAYS INTAKE, 7 DAYS PAUSE)
     Route: 048
     Dates: start: 20191227, end: 20200123
  4. KISQALI [Suspect]
     Active Substance: RIBOCICLIB
     Dosage: 400 MG DAILY DOSE (ADMINISTRATION SCHEME 21 DAYS INTAKE, 7 DAYS PAUSE)
     Route: 048
     Dates: start: 20200124, end: 20200220
  5. KISQALI [Suspect]
     Active Substance: RIBOCICLIB
     Dosage: 400 MG DAILY DOSE (ADMINISTRATION SCHEME 21 DAYS INTAKE, 7 DAYS PAUSE)
     Route: 048
     Dates: start: 20200221, end: 20200319
  6. KISQALI [Suspect]
     Active Substance: RIBOCICLIB
     Dosage: 400 MG DAILY DOSE (ADMINISTRATION SCHEME 21 DAYS INTAKE, 7 DAYS PAUSE)
     Route: 048
     Dates: start: 20200320, end: 20200416
  7. KISQALI [Suspect]
     Active Substance: RIBOCICLIB
     Dosage: 400 MG DAILY DOSE (ADMINISTRATION SCHEME 21 DAYS INTAKE, 7 DAYS PAUSE)
     Route: 048
     Dates: start: 20200417, end: 20211109
  8. LETROZOLE [Suspect]
     Active Substance: LETROZOLE
     Indication: Breast cancer metastatic
     Dosage: 2.5 MG, QD
     Route: 048
     Dates: start: 20191011, end: 20211109

REACTIONS (8)
  - Breast cancer metastatic [Fatal]
  - Malignant neoplasm progression [Fatal]
  - General physical health deterioration [Fatal]
  - Infection [Recovered/Resolved]
  - Dermatitis [Not Recovered/Not Resolved]
  - Nausea [Recovered/Resolved]
  - Herpes zoster [Not Recovered/Not Resolved]
  - Malaise [Recovered/Resolved]

NARRATIVE: CASE EVENT DATE: 20191111
